FAERS Safety Report 8274771-0 (Version None)
Quarter: 2012Q2

REPORT INFORMATION
  Report Type: 
  Country: None (occurrence: None)
  Receive Date: 20120409
  Receipt Date: 20120322
  Transmission Date: 20120825
  Serious: Yes (Hospitalization)
  Sender: FDA-Public Use
  Company Number: 2012MA003953

PATIENT
  Age: 27 Year
  Sex: Female

DRUGS (3)
  1. FLUOXETINE [Concomitant]
  2. ALCOHOL [Concomitant]
  3. VENLAFAXINE HCL [Suspect]
     Dosage: 4500 MG

REACTIONS (10)
  - LEFT VENTRICULAR FAILURE [None]
  - ACUTE PULMONARY OEDEMA [None]
  - NEUROTOXICITY [None]
  - CONVULSION [None]
  - SEROTONIN SYNDROME [None]
  - CARDIOTOXICITY [None]
  - CARDIOGENIC SHOCK [None]
  - TOXICITY TO VARIOUS AGENTS [None]
  - BLOOD ALCOHOL INCREASED [None]
  - HEART RATE DECREASED [None]
